FAERS Safety Report 18485214 (Version 1)
Quarter: 2020Q4

REPORT INFORMATION
  Report Type: Not Available
  Country: US (occurrence: US)
  Receive Date: 20201110
  Receipt Date: 20201110
  Transmission Date: 20210114
  Serious: No
  Sender: FDA-Public Use
  Company Number: US-NEUROCRINE BIOSCIENCES INC.-2020NBI03987

PATIENT
  Age: 68 Year
  Sex: Female

DRUGS (1)
  1. INGREZZA [Suspect]
     Active Substance: VALBENAZINE
     Indication: TARDIVE DYSKINESIA
     Route: 048
     Dates: start: 20170525

REACTIONS (4)
  - Middle insomnia [Unknown]
  - Intentional product use issue [Unknown]
  - Overdose [Unknown]
  - Therapeutic product effect decreased [Unknown]
